FAERS Safety Report 9731932 (Version 2)
Quarter: 2014Q1

REPORT INFORMATION
  Report Type: Spontaneous
  Country: FR (occurrence: FR)
  Receive Date: 20131205
  Receipt Date: 20140205
  Transmission Date: 20141002
  Serious: Yes (Death)
  Sender: FDA-Public Use
  Company Number: PHHY2013FR141057

PATIENT
  Age: 42 Year
  Sex: Female

DRUGS (1)
  1. ILARIS [Suspect]
     Indication: STILL^S DISEASE ADULT ONSET
     Dosage: 150 MG, Q2MO
     Dates: start: 201002

REACTIONS (2)
  - Histiocytosis haematophagic [Fatal]
  - B-cell lymphoma [Fatal]
